FAERS Safety Report 7808497-1 (Version None)
Quarter: 2011Q4

REPORT INFORMATION
  Report Type: 
  Country: None (occurrence: None)
  Receive Date: 20111011
  Receipt Date: 20111011
  Transmission Date: 20120403
  Serious: Yes (Hospitalization)
  Sender: FDA-Public Use
  Company Number: None

PATIENT
  Sex: Female
  Weight: 16.3 kg

DRUGS (15)
  1. ONCASPAR [Suspect]
     Dosage: 1750 MG
  2. CYTARABINE [Suspect]
     Dosage: 70 MG
  3. ONDANSETRON HCL [Concomitant]
  4. RASBURICASE [Concomitant]
  5. DEXAMETHASONE [Suspect]
     Dosage: 119 MG
  6. METHOTREXATE [Suspect]
     Dosage: 24 MG
  7. ACETAMINOPHEN [Concomitant]
  8. VINCRISTINE SULFATE [Suspect]
     Dosage: 4.4 MG
  9. PHYTONADIONE [Concomitant]
  10. FAMOTIDINE [Concomitant]
  11. DIPHENHYDRAMINE HCL [Concomitant]
  12. MORPHINE [Concomitant]
  13. FUROSEMIDE [Concomitant]
  14. LACTULOSE [Concomitant]
  15. PROPOFOL [Concomitant]

REACTIONS (2)
  - GASTROINTESTINAL NECROSIS [None]
  - ILEAL PERFORATION [None]
